FAERS Safety Report 15722147 (Version 1)
Quarter: 2018Q4

REPORT INFORMATION
  Report Type: Report from Study
  Country: US (occurrence: US)
  Receive Date: 20181214
  Receipt Date: 20181214
  Transmission Date: 20190205
  Serious: Yes (Hospitalization)
  Sender: FDA-Public Use
  Company Number: US-ASTELLAS-2018US053245

PATIENT
  Age: 72 Year
  Sex: Male

DRUGS (3)
  1. ASP2215 [Suspect]
     Active Substance: GILTERITINIB
     Route: 048
     Dates: start: 20180813
  2. ASP2215 [Suspect]
     Active Substance: GILTERITINIB
     Indication: ACUTE MYELOID LEUKAEMIA
     Route: 048
     Dates: start: 20180312, end: 20180709
  3. ASP2215 [Suspect]
     Active Substance: GILTERITINIB
     Route: 048
     Dates: start: 20180730, end: 20180812

REACTIONS (2)
  - Chest pain [Recovered/Resolved]
  - Failure to thrive [Recovering/Resolving]

NARRATIVE: CASE EVENT DATE: 20181125
